FAERS Safety Report 9708176 (Version 2)
Quarter: 2013Q4

REPORT INFORMATION
  Report Type: Report from Study
  Country: US (occurrence: US)
  Receive Date: 20131125
  Receipt Date: 20131202
  Transmission Date: 20140711
  Serious: Yes (Hospitalization)
  Sender: FDA-Public Use
  Company Number: US-BAXTER-2013BAX045749

PATIENT
  Age: 60 Year
  Sex: Female
  Weight: 102.27 kg

DRUGS (24)
  1. GAMMAGARD LIQUID [Suspect]
     Indication: IMMUNODEFICIENCY COMMON VARIABLE
     Route: 042
     Dates: start: 2008
  2. HYDROCORTISONE [Concomitant]
     Indication: ADRENAL INSUFFICIENCY
     Route: 048
  3. HYDROCORTISONE [Concomitant]
     Route: 048
  4. MORPHINE [Concomitant]
     Indication: PRODUCT USED FOR UNKNOWN INDICATION
     Dosage: OVER 24 HOURS
  5. MORPHINE [Concomitant]
     Dosage: EXTENDED RELEASE
     Route: 048
  6. HYDROMORPHONE [Concomitant]
     Indication: PRODUCT USED FOR UNKNOWN INDICATION
     Route: 048
  7. ALPRAZOLAM [Concomitant]
     Indication: ANXIETY
     Route: 048
  8. ATENOLOL [Concomitant]
     Indication: PRODUCT USED FOR UNKNOWN INDICATION
     Route: 048
  9. CYMBALTA [Concomitant]
     Indication: PRODUCT USED FOR UNKNOWN INDICATION
     Route: 048
  10. CYPROHEPTADINE [Concomitant]
     Indication: PRODUCT USED FOR UNKNOWN INDICATION
     Route: 048
  11. FLUDROCORTISONE [Concomitant]
     Indication: ADRENAL INSUFFICIENCY
     Route: 048
  12. FUROSEMIDE [Concomitant]
     Indication: PRODUCT USED FOR UNKNOWN INDICATION
     Route: 048
  13. POTASSIUM [Concomitant]
     Indication: PRODUCT USED FOR UNKNOWN INDICATION
     Route: 048
  14. GENERLAC [Concomitant]
     Indication: CONSTIPATION
     Route: 048
  15. LANTUS SOLOSTAR [Concomitant]
     Indication: DIABETES MELLITUS
     Dosage: 22 UNITS
     Route: 058
  16. INSULIN [Concomitant]
     Indication: DIABETES MELLITUS
     Dosage: SLIDING SCALE
     Route: 058
  17. METFORMIN ER [Concomitant]
     Indication: DIABETES MELLITUS
     Route: 048
  18. LEVOTHYROXINE [Concomitant]
     Indication: PRODUCT USED FOR UNKNOWN INDICATION
     Route: 048
  19. LIPITOR [Concomitant]
     Indication: PRODUCT USED FOR UNKNOWN INDICATION
     Route: 048
  20. METHOCARBAMOL [Concomitant]
     Indication: PRODUCT USED FOR UNKNOWN INDICATION
     Route: 048
  21. PROMETHAZINE [Concomitant]
     Indication: PRODUCT USED FOR UNKNOWN INDICATION
     Route: 048
  22. TEMAZEPAM [Concomitant]
     Indication: PRODUCT USED FOR UNKNOWN INDICATION
     Route: 048
  23. OXYGEN [Concomitant]
     Indication: ASTHMA
     Dosage: CONTINUOUS DURING THE DAY
     Route: 055
  24. OXYGEN [Concomitant]
     Dosage: CPAP AT NIGHT
     Route: 055

REACTIONS (2)
  - Infected bites [Recovered/Resolved]
  - Nausea [Recovered/Resolved]
